FAERS Safety Report 25161240 (Version 1)
Quarter: 2025Q2

REPORT INFORMATION
  Report Type: Spontaneous
  Country: EU (occurrence: EU)
  Receive Date: 20250404
  Receipt Date: 20250404
  Transmission Date: 20250717
  Serious: Yes (Other)
  Sender: SEPTODONT
  Company Number: None

PATIENT
  Weight: 45.3 kg

DRUGS (3)
  1. ARTICAINE HYDROCHLORIDE\EPINEPHRINE BITARTRATE [Suspect]
     Active Substance: ARTICAINE HYDROCHLORIDE\EPINEPHRINE BITARTRATE
     Indication: Dental care
     Route: 004
     Dates: end: 20240930
  2. LIDOCAINE HYDROCHLORIDE [Concomitant]
     Active Substance: LIDOCAINE HYDROCHLORIDE
     Indication: Dental care
     Route: 058
     Dates: start: 20250317
  3. CHLORHEXIDINE ACETATE [Concomitant]
     Active Substance: CHLORHEXIDINE ACETATE
     Indication: Dental care
     Route: 002
     Dates: end: 202405

REACTIONS (3)
  - Lip ulceration [Recovered/Resolved]
  - Rash maculo-papular [Recovered/Resolved]
  - Gingival ulceration [Recovered/Resolved]

NARRATIVE: CASE EVENT DATE: 20240101
